FAERS Safety Report 10366207 (Version 1)
Quarter: 2014Q3

REPORT INFORMATION
  Report Type: Spontaneous
  Country: US (occurrence: US)
  Receive Date: 20140806
  Receipt Date: 20140806
  Transmission Date: 20150326
  Serious: Yes (Hospitalization, Other)
  Sender: FDA-Public Use
  Company Number: US-B.I. PHARMACEUTICALS,INC./RIDGEFIELD-2014-BI-35379BP

PATIENT
  Age: 80 Year
  Sex: Female

DRUGS (12)
  1. FERROUS SULFATE [Concomitant]
     Active Substance: FERROUS SULFATE\FERROUS SULFATE, DRIED
     Dosage: 325 MG
     Route: 065
  2. PROTONIX [Concomitant]
     Active Substance: PANTOPRAZOLE SODIUM
     Dosage: 40 MG
     Route: 065
  3. METHOTREXATE [Concomitant]
     Active Substance: METHOTREXATE
     Indication: RHEUMATOID ARTHRITIS
     Dosage: 7.1429 MG
     Route: 065
  4. MULTIVITAMIN [Concomitant]
     Active Substance: VITAMINS
     Route: 065
  5. TRAMADOL [Concomitant]
     Active Substance: TRAMADOL
     Route: 048
  6. PRADAXA [Suspect]
     Active Substance: DABIGATRAN ETEXILATE MESYLATE
     Indication: PRODUCT USED FOR UNKNOWN INDICATION
     Dosage: 300 MG
     Route: 048
     Dates: end: 201208
  7. AMIODARONE [Concomitant]
     Active Substance: AMIODARONE
     Dosage: 800 MG
     Route: 048
  8. DIGOXIN. [Concomitant]
     Active Substance: DIGOXIN
     Dosage: 125 MCG
     Route: 048
  9. CALCIUM WITH VITAMIN D [Concomitant]
     Active Substance: CALCIUM\VITAMIN D
     Dosage: 2 ANZ
     Route: 065
  10. OMEGA 3 POLYUNSATURATED [Concomitant]
     Dosage: 2400 MG
     Route: 065
  11. ASPIRIN. [Concomitant]
     Active Substance: ASPIRIN
     Route: 065
  12. FOLIC ACID. [Concomitant]
     Active Substance: FOLIC ACID
     Dosage: 1 MG
     Route: 065

REACTIONS (2)
  - Haemorrhagic anaemia [Unknown]
  - Small intestinal haemorrhage [Recovered/Resolved]

NARRATIVE: CASE EVENT DATE: 20120802
